FAERS Safety Report 11534076 (Version 1)
Quarter: 2015Q3

REPORT INFORMATION
  Report Type: Spontaneous
  Country: US (occurrence: US)
  Receive Date: 20150922
  Receipt Date: 20150922
  Transmission Date: 20151125
  Serious: No
  Sender: FDA-Public Use
  Company Number: US-ASTRAZENECA-2015SE87729

PATIENT
  Age: 84 Year
  Sex: Female
  Weight: 68 kg

DRUGS (6)
  1. ESOMEPRAZOLE MAGNESIUM. [Suspect]
     Active Substance: ESOMEPRAZOLE MAGNESIUM
     Indication: HIATUS HERNIA
     Dosage: NEXIUM
     Route: 048
  2. AMLODIPINE BESILATE [Concomitant]
     Active Substance: AMLODIPINE BESYLATE
     Indication: HYPERTENSION
     Dosage: 5 MG, 1X/DAY, 10 MG TABLET, HALF A TABLET IN THE MORNING
     Dates: start: 2010
  3. ESOMEPRAZOLE MAGNESIUM. [Suspect]
     Active Substance: ESOMEPRAZOLE MAGNESIUM
     Indication: HIATUS HERNIA
     Route: 048
  4. AMLODIPINE BESILATE [Concomitant]
     Active Substance: AMLODIPINE BESYLATE
     Indication: HYPERTENSION
     Route: 048
     Dates: start: 2010
  5. TYLENOL [Concomitant]
     Active Substance: ACETAMINOPHEN
     Dosage: 4 DF, 1X/DAY, TWO IN MORNING, TWO AT NIGHT
  6. BENADRYL [Concomitant]
     Active Substance: DIPHENHYDRAMINE HYDROCHLORIDE
     Indication: PRURITUS

REACTIONS (3)
  - Product use issue [Unknown]
  - Pruritus [Unknown]
  - Malaise [Unknown]
